FAERS Safety Report 13372093 (Version 1)
Quarter: 2017Q1

REPORT INFORMATION
  Report Type: Spontaneous
  Country: US (occurrence: US)
  Receive Date: 20170324
  Receipt Date: 20170324
  Transmission Date: 20170429
  Serious: Yes (Disabling, Other)
  Sender: FDA-Public Use
  Company Number: None

PATIENT
  Age: 40 Year
  Sex: Male
  Weight: 115.2 kg

DRUGS (1)
  1. SULFAMETHOXAZOLE-TMP DS TA [Suspect]
     Active Substance: SULFAMETHOXAZOLE\TRIMETHOPRIM
     Indication: LYMPHADENOPATHY
     Dosage: ?          QUANTITY:40 TABLET(S);?
     Route: 048
     Dates: start: 20170213, end: 20170227

REACTIONS (5)
  - Pyrexia [None]
  - Malaise [None]
  - Angle closure glaucoma [None]
  - Liver function test increased [None]
  - Blindness transient [None]

NARRATIVE: CASE EVENT DATE: 20170227
